FAERS Safety Report 8230161-8 (Version None)
Quarter: 2012Q1

REPORT INFORMATION
  Report Type: 
  Country: None (occurrence: None)
  Receive Date: 20120323
  Receipt Date: 20120320
  Transmission Date: 20120608
  Serious: No
  Sender: FDA-Public Use
  Company Number: US-PFIZER INC-2012072733

PATIENT
  Sex: Female
  Weight: 60.317 kg

DRUGS (4)
  1. PREMARIN [Suspect]
     Indication: VULVOVAGINAL DRYNESS
     Dosage: UNK
     Route: 067
     Dates: start: 20120318
  2. PREMARIN [Suspect]
     Indication: DYSPAREUNIA
  3. LOSARTAN [Concomitant]
     Indication: HYPERTENSION
     Dosage: 100 MG, UNK
  4. FLECAINIDE [Concomitant]
     Indication: ARRHYTHMIA
     Dosage: 50 MG, UNK

REACTIONS (1)
  - BACK PAIN [None]
